FAERS Safety Report 9486968 (Version 1)
Quarter: 2013Q3

REPORT INFORMATION
  Report Type: Spontaneous
  Country: CH (occurrence: CH)
  Receive Date: 20130829
  Receipt Date: 20130829
  Transmission Date: 20140515
  Serious: Yes (Other)
  Sender: FDA-Public Use
  Company Number: CH-ASTRAZENECA-2013SE65275

PATIENT
  Age: 85 Year
  Sex: Male

DRUGS (11)
  1. NEXIUM [Suspect]
     Route: 048
     Dates: start: 20130610
  2. FURADANTIN [Suspect]
     Indication: URINARY TRACT INFECTION
     Route: 048
     Dates: start: 20130610, end: 20130619
  3. EFEXOR [Concomitant]
     Route: 048
     Dates: start: 20130518
  4. ATORVASTATIN [Concomitant]
     Route: 048
  5. CONCOR [Concomitant]
     Route: 048
  6. AMLODIPIN [Concomitant]
     Route: 048
  7. COVERSUM COMBI [Concomitant]
     Route: 048
  8. ASPIRIN CARDIO [Concomitant]
     Route: 048
  9. ASPIRIN CARDIO [Concomitant]
     Route: 048
     Dates: start: 20130605
  10. SEROQUEL [Concomitant]
     Route: 048
  11. FRAGMIN [Concomitant]
     Route: 058

REACTIONS (2)
  - Delirium [Not Recovered/Not Resolved]
  - Agitation [Not Recovered/Not Resolved]
